FAERS Safety Report 16423536 (Version 2)
Quarter: 2019Q3

REPORT INFORMATION
  Report Type: Report from Study
  Country: None (occurrence: CL)
  Receive Date: 20190613
  Receipt Date: 20190719
  Transmission Date: 20191004
  Serious: Yes (Life-Threatening, Hospitalization, Other)
  Sender: FDA-Public Use
  Company Number: CL-ABBVIE-19K-034-2817359-00

PATIENT
  Sex: Female

DRUGS (1)
  1. HUMIRA [Suspect]
     Active Substance: ADALIMUMAB
     Indication: RHEUMATOID ARTHRITIS
     Route: 058
     Dates: start: 20190315, end: 2019

REACTIONS (7)
  - General physical health deterioration [Unknown]
  - Disorientation [Recovering/Resolving]
  - Medical induction of coma [Recovered/Resolved]
  - Cardio-respiratory arrest [Recovering/Resolving]
  - Blindness [Unknown]
  - Bronchopulmonary disease [Unknown]
  - Bronchitis [Unknown]

NARRATIVE: CASE EVENT DATE: 2019
